FAERS Safety Report 24350113 (Version 1)
Quarter: 2024Q3

REPORT INFORMATION
  Report Type: Spontaneous
  Country: CN (occurrence: CN)
  Receive Date: 20240923
  Receipt Date: 20240923
  Transmission Date: 20241016
  Serious: Yes (Hospitalization)
  Sender: JIANGSU HENGRUI MEDICINE
  Company Number: CN-Jiangsu Hengrui Medicine Co., Ltd.-2161916

PATIENT
  Age: 53 Year
  Sex: Male

DRUGS (3)
  1. OXALIPLATIN [Suspect]
     Active Substance: OXALIPLATIN
     Indication: Bile duct cancer
     Dates: start: 20240823, end: 20240823
  2. TISLELIZUMAB [Suspect]
     Active Substance: TISLELIZUMAB
     Dates: start: 20240823, end: 20240823
  3. GEMCITABINE [Concomitant]
     Active Substance: GEMCITABINE
     Dates: start: 20240823, end: 20240823

REACTIONS (1)
  - Vision blurred [Recovering/Resolving]

NARRATIVE: CASE EVENT DATE: 20240823
